FAERS Safety Report 8601596-6 (Version None)
Quarter: 2012Q3

REPORT INFORMATION
  Report Type: 
  Country: None (occurrence: None)
  Receive Date: 20120817
  Receipt Date: 20111213
  Transmission Date: 20120928
  Serious: No
  Sender: FDA-Public Use
  Company Number: US-BRISTOL-MYERS SQUIBB COMPANY-16289498

PATIENT
  Age: 73 Year
  Sex: Female
  Weight: 73 kg

DRUGS (4)
  1. LEXAPRO [Concomitant]
  2. ALENDRONATE SODIUM [Concomitant]
  3. SPRYCEL [Suspect]
     Indication: CHRONIC MYELOID LEUKAEMIA
     Dosage: PRESCRIPTION#: P614778
     Route: 048
  4. CITRUCEL [Concomitant]

REACTIONS (6)
  - SWELLING FACE [None]
  - HEADACHE [None]
  - NAUSEA [None]
  - PYREXIA [None]
  - COUGH [None]
  - GINGIVAL BLEEDING [None]
